FAERS Safety Report 24533886 (Version 1)
Quarter: 2024Q4

REPORT INFORMATION
  Report Type: Spontaneous
  Country: AT (occurrence: AT)
  Receive Date: 20241022
  Receipt Date: 20241022
  Transmission Date: 20250114
  Serious: Yes (Hospitalization)
  Sender: FRESENIUS KABI
  Company Number: AT-CELLTRION HEALTHCARE HUNGARY KFT-2018AT025435

PATIENT
  Age: 78 Year
  Sex: Female
  Weight: 48 kg

DRUGS (22)
  1. PACLITAXEL [Suspect]
     Active Substance: PACLITAXEL
     Indication: Breast cancer
     Dosage: 13.69 MG, QW?ROUTE OF ADMIN: INTRAVENOUS?FORM OF ADMIN:  UNKNOWN
     Dates: start: 20180810, end: 20180914
  2. PERTUZUMAB [Suspect]
     Active Substance: PERTUZUMAB
     Indication: Breast cancer
     Dosage: 840 MG, Q3W  (MOST RECENT DOSE PRIOR TO THE EVENT 31 AUG 2018)?ROA: INTRAVENOUS
     Dates: start: 20180810, end: 20180810
  3. LETROZOLE [Suspect]
     Active Substance: LETROZOLE
     Indication: Breast cancer
     Dosage: 2.5 MG, QD?ROA: ORAL
     Dates: start: 20181029, end: 20190613
  4. TRASTUZUMAB [Suspect]
     Active Substance: TRASTUZUMAB
     Indication: Breast cancer
     Dosage: 384 MG, Q3W (MOST RECENT DOSE PRIOR TO THE EVENT: 09 NOV 2018)?DOSAGE FORM: POWDER FOR CONCENTRATE F
     Dates: start: 20180810, end: 20180810
  5. PACLITAXEL [Suspect]
     Active Substance: PACLITAXEL
     Indication: Breast cancer
     Dosage: UNK, START DATE 27-NOV-2018
  6. ASCORBIC ACID\CALCIUM PHOSPHATE\CHOLECALCIFEROL\CITRIC ACID MONOHYDRAT [Concomitant]
     Active Substance: ASCORBIC ACID\CALCIUM PHOSPHATE\CHOLECALCIFEROL\CITRIC ACID MONOHYDRATE
     Indication: Gastroenteritis radiation
     Dosage: UNK
     Dates: start: 20181117, end: 20181118
  7. CALCIUM CHLORIDE\SODIUM CHLORIDE\SODIUM PHOSPHATE, DIBASIC, ANHYDROUS\ [Concomitant]
     Active Substance: CALCIUM CHLORIDE\SODIUM CHLORIDE\SODIUM PHOSPHATE, DIBASIC, ANHYDROUS\SODIUM PHOSPHATE, MONOBASIC, A
     Indication: Mucosal inflammation
     Dosage: UNK (ONGOING = NOT CHECKED)
     Dates: start: 20180615, end: 20180921
  8. KYTRIL [Concomitant]
     Active Substance: GRANISETRON HYDROCHLORIDE
     Indication: Product used for unknown indication
     Dosage: UNK?DOSAGE FORM: TABLET
     Dates: start: 20180928, end: 20181019
  9. XGEVA [Concomitant]
     Active Substance: DENOSUMAB
     Indication: Product used for unknown indication
     Dosage: UNK
     Dates: start: 20180817
  10. AMLODIPINE BESYLATE [Concomitant]
     Active Substance: AMLODIPINE BESYLATE
     Indication: Hypertension
     Dosage: UNK ONGOING = NOT CHECKED
     Dates: start: 20180810, end: 20190615
  11. AMLODIPINE BESYLATE [Concomitant]
     Active Substance: AMLODIPINE BESYLATE
     Dosage: UNK ONGOING = NOT CHECKED
     Route: 065
     Dates: start: 20180810, end: 20190615
  12. ANTIFLAT [Concomitant]
     Indication: Product used for unknown indication
     Dosage: UNK
     Dates: start: 20181126
  13. ANTIFLAT [Concomitant]
     Dosage: UNK
     Route: 065
     Dates: start: 20181126
  14. MESALAMINE [Concomitant]
     Active Substance: MESALAMINE
     Indication: Product used for unknown indication
     Dosage: UNK (ONGOING = CHECKED)
  15. Temesta [Concomitant]
     Indication: Product used for unknown indication
     Dosage: UNK (ONGOING = NOT CHECKED)
  16. LOPERAMIDE HYDROCHLORIDE [Concomitant]
     Active Substance: LOPERAMIDE HYDROCHLORIDE
     Indication: Diarrhoea
     Dosage: UNK
     Dates: start: 20181012, end: 20181116
  17. MEFENAMIC ACID [Concomitant]
     Active Substance: MEFENAMIC ACID
     Indication: Arthralgia
     Dosage: UNK (ONGOING = NOT CHECKED)
     Dates: start: 20180914
  18. TRAZODONE HYDROCHLORIDE [Concomitant]
     Active Substance: TRAZODONE HYDROCHLORIDE
     Indication: Product used for unknown indication
     Dosage: UNK
  19. MYCOSTATIN [Concomitant]
     Active Substance: NYSTATIN
     Indication: Mucosal inflammation
     Dosage: UNK (ONGOING = NOT CHECKED)
     Dates: start: 20190615, end: 20190819
  20. MYCOSTATIN [Concomitant]
     Active Substance: NYSTATIN
     Dosage: UNK (ONGOING = NOT CHECKED)
     Route: 065
     Dates: start: 20190615, end: 20190819
  21. CALCIUM CARBONATE\CHOLECALCIFEROL [Concomitant]
     Active Substance: CALCIUM CARBONATE\CHOLECALCIFEROL
     Indication: Product used for unknown indication
     Dosage: UNK
     Dates: start: 20180817, end: 20190615
  22. ZOFRAN [Concomitant]
     Active Substance: ONDANSETRON HYDROCHLORIDE
     Indication: Nausea
     Dosage: UNK (LINGUIAL)
     Dates: start: 20180907

REACTIONS (2)
  - Gastroenteritis radiation [Recovered/Resolved]
  - Abdominal pain upper [Not Recovered/Not Resolved]

NARRATIVE: CASE EVENT DATE: 20181109
